FAERS Safety Report 10052838 (Version 1)
Quarter: 2014Q1

REPORT INFORMATION
  Report Type: Spontaneous
  Country: TR (occurrence: None)
  Receive Date: 20140331
  Receipt Date: 20140331
  Transmission Date: 20141002
  Serious: Yes (Hospitalization, Other)
  Sender: FDA-Public Use
  Company Number: 2013TR00797

PATIENT
  Age: 48 Year
  Sex: Male
  Weight: 74 kg

DRUGS (1)
  1. SERTRALINE [Suspect]
     Indication: MAJOR DEPRESSION

REACTIONS (5)
  - Ventricular fibrillation [None]
  - Cardiac arrest [None]
  - Hypokalaemia [None]
  - Post procedural complication [None]
  - Chest pain [None]
